FAERS Safety Report 23275197 (Version 1)
Quarter: 2023Q4

REPORT INFORMATION
  Report Type: Spontaneous
  Country: IT (occurrence: IT)
  Receive Date: 20231208
  Receipt Date: 20231208
  Transmission Date: 20240110
  Serious: Yes (Other)
  Sender: FDA-Public Use
  Company Number: None

PATIENT

DRUGS (2)
  1. CYCLOPHOSPHAMIDE [Suspect]
     Active Substance: CYCLOPHOSPHAMIDE
     Indication: Breast neoplasm
     Dosage: 950 MG
     Route: 042
     Dates: start: 20230804
  2. EPIRUBICIN [Suspect]
     Active Substance: EPIRUBICIN
     Indication: Breast neoplasm
     Dosage: 110 MG
     Route: 042
     Dates: start: 20230804

REACTIONS (10)
  - Neutropenia [Recovered/Resolved]
  - Somnolence [Recovering/Resolving]
  - Urinary incontinence [Recovered/Resolved]
  - Dermal cyst [Recovered/Resolved]
  - Mucosal inflammation [Recovering/Resolving]
  - Constipation [Recovering/Resolving]
  - Dysgeusia [Recovering/Resolving]
  - Paraesthesia [Recovering/Resolving]
  - Pruritus [Recovered/Resolved]
  - Asthenia [Recovering/Resolving]

NARRATIVE: CASE EVENT DATE: 20230817
